FAERS Safety Report 20856082 (Version 2)
Quarter: 2022Q2

REPORT INFORMATION
  Report Type: Report from Study
  Country: KR (occurrence: KR)
  Receive Date: 20220520
  Receipt Date: 20220623
  Transmission Date: 20220721
  Serious: Yes (Hospitalization, Other)
  Sender: FDA-Public Use
  Company Number: KR-ONO-2022KR008693

PATIENT
  Age: 68 Year
  Sex: Male
  Weight: 56 kg

DRUGS (6)
  1. CAPECITABINE [Suspect]
     Active Substance: CAPECITABINE
     Indication: Gastric cancer
     Dosage: RECEIVED 1600 MG/M2 TABLET FROM 07-FEB-2022 TILL 21-FEB-2022 (DURATION: 15 DAYS) ?RECEIVED 1600 MG/M
     Route: 065
     Dates: start: 20220207, end: 20220427
  2. OXALIPLATIN [Suspect]
     Active Substance: OXALIPLATIN
     Indication: Gastric cancer
     Dosage: RECEIVED 209 MG/M2 INJECTION ON 07-FEB-2022 (DURATION: 01 DAY)?RECEIVED 209 MG/M2 INJECTION ON 02-MA
     Route: 065
     Dates: start: 20220207, end: 20220413
  3. mucosta SR [Concomitant]
     Indication: Product used for unknown indication
     Route: 065
     Dates: end: 20220509
  4. NEXIUM [Concomitant]
     Active Substance: ESOMEPRAZOLE MAGNESIUM
     Indication: Product used for unknown indication
     Route: 065
  5. TRAZODONE HYDROCHLORIDE [Concomitant]
     Active Substance: TRAZODONE HYDROCHLORIDE
     Indication: Product used for unknown indication
     Route: 065
  6. XANAX [Concomitant]
     Active Substance: ALPRAZOLAM
     Indication: Product used for unknown indication
     Route: 065

REACTIONS (2)
  - Haematochezia [Recovering/Resolving]
  - Pneumonia aspiration [Recovering/Resolving]

NARRATIVE: CASE EVENT DATE: 20220329
